FAERS Safety Report 6846216-6 (Version None)
Quarter: 2010Q3

REPORT INFORMATION
  Report Type: 
  Country: None (occurrence: None)
  Receive Date: 20100715
  Receipt Date: 20070911
  Transmission Date: 20110219
  Serious: No
  Sender: FDA-Public Use
  Company Number: US-PFIZER INC-2007076806

PATIENT
  Sex: Male
  Weight: 89.8 kg

DRUGS (11)
  1. CHANTIX [Suspect]
     Indication: SMOKING CESSATION THERAPY
     Route: 048
     Dates: start: 20070815
  2. ENALAPRIL MALEATE [Concomitant]
     Route: 048
  3. MULTI-VITAMINS [Concomitant]
     Route: 048
  4. FOLIC ACID [Concomitant]
     Route: 048
  5. PLAVIX [Concomitant]
     Route: 048
  6. LIPITOR [Concomitant]
     Indication: BLOOD CHOLESTEROL
     Route: 048
  7. TAMSULOSIN HYDROCHLORIDE [Concomitant]
     Route: 048
  8. METOPROLOL [Concomitant]
     Route: 048
  9. ISONIAZID [Concomitant]
     Route: 048
  10. PHOSLO [Concomitant]
     Route: 048
  11. SODIUM BICARBONATE [Concomitant]
     Route: 048

REACTIONS (1)
  - VOMITING [None]
